FAERS Safety Report 14343094 (Version 1)
Quarter: 2017Q4

REPORT INFORMATION
  Report Type: Spontaneous
  Country: US (occurrence: US)
  Receive Date: 20171231
  Receipt Date: 20171231
  Transmission Date: 20180321
  Serious: Yes (Other)
  Sender: FDA-Public Use
  Company Number: None

PATIENT
  Age: 55 Year
  Sex: Female
  Weight: 74.7 kg

DRUGS (4)
  1. LASIX [Concomitant]
     Active Substance: FUROSEMIDE
  2. XANAX [Concomitant]
     Active Substance: ALPRAZOLAM
  3. ESTRADIOL. [Concomitant]
     Active Substance: ESTRADIOL
  4. FETZIMA [Suspect]
     Active Substance: LEVOMILNACIPRAN HYDROCHLORIDE
     Indication: DEPRESSION
     Dosage: ?          QUANTITY:1 CAPSULE(S);?
     Route: 048
     Dates: start: 20130801, end: 20171129

REACTIONS (6)
  - Confusional state [None]
  - Seizure [None]
  - Visual impairment [None]
  - Speech disorder [None]
  - Mental disorder [None]
  - Serum serotonin increased [None]

NARRATIVE: CASE EVENT DATE: 20171129
